FAERS Safety Report 18894432 (Version 1)
Quarter: 2021Q1

REPORT INFORMATION
  Report Type: Spontaneous
  Country: FR (occurrence: FR)
  Receive Date: 20210215
  Receipt Date: 20210215
  Transmission Date: 20210420
  Serious: Yes (Other)
  Sender: FDA-Public Use
  Company Number: NVSC2021FR025025

PATIENT
  Age: 46 Year
  Sex: Female

DRUGS (6)
  1. ANAKINRA [Concomitant]
     Active Substance: ANAKINRA
     Indication: STILL^S DISEASE
     Dosage: 100 MG, QD
     Route: 065
  2. ATAZANAVIR. [Concomitant]
     Active Substance: ATAZANAVIR
     Indication: HIV INFECTION
     Dosage: UNK
     Route: 065
     Dates: start: 2009
  3. EMTRICITABINE / TENOFOVIR DISOPROXIL FUMARATE [Concomitant]
     Active Substance: EMTRICITABINE\TENOFOVIR DISOPROXIL FUMARATE
     Indication: HIV INFECTION
     Dosage: UNK
     Route: 065
     Dates: start: 2009
  4. PREDNISONE. [Suspect]
     Active Substance: PREDNISONE
     Indication: STILL^S DISEASE
     Dosage: 30 MILLIGRAM, QD 0.5 MG/KG/DAY
     Route: 048
     Dates: start: 2018
  5. PREDNISONE. [Suspect]
     Active Substance: PREDNISONE
     Dosage: 5 MG
     Route: 048
  6. ANAKINRA [Concomitant]
     Active Substance: ANAKINRA
     Dosage: UNK (DOUBLE DOSE)
     Route: 065

REACTIONS (3)
  - Therapeutic response decreased [Unknown]
  - Still^s disease [Unknown]
  - Steroid dependence [Recovered/Resolved]

NARRATIVE: CASE EVENT DATE: 2018
